FAERS Safety Report 5169040-1 (Version None)
Quarter: 2006Q4

REPORT INFORMATION
  Report Type: 
  Country: None (occurrence: None)
  Receive Date: 20061211
  Receipt Date: 20040209
  Transmission Date: 20070319
  Serious: Yes (Hospitalization)
  Sender: FDA-Public Use
  Company Number: US-ROCHE-358644

PATIENT
  Age: 20 Year
  Sex: Female
  Weight: 60.3 kg

DRUGS (3)
  1. ACCUTANE [Suspect]
     Route: 048
     Dates: start: 20001215, end: 20010515
  2. CLARITIN [Concomitant]
     Route: 048
  3. ORTHO TRI-CYCLEN [Concomitant]
     Route: 048

REACTIONS (63)
  - ABDOMINAL DISTENSION [None]
  - ACNE [None]
  - ANXIETY [None]
  - ARRHYTHMIA [None]
  - ASTHENIA [None]
  - ATRIAL FIBRILLATION [None]
  - BACK PAIN [None]
  - BENIGN INTRACRANIAL HYPERTENSION [None]
  - BRONCHITIS [None]
  - CHEST PAIN [None]
  - CONDITION AGGRAVATED [None]
  - COUGH [None]
  - DEAFNESS [None]
  - DEPRESSION [None]
  - DERMATITIS CONTACT [None]
  - DIZZINESS [None]
  - DRUG INEFFECTIVE [None]
  - DRY EYE [None]
  - DRY MOUTH [None]
  - DRY SKIN [None]
  - DYSPNOEA [None]
  - EPISTAXIS [None]
  - ERYTHEMA [None]
  - EXFOLIATIVE RASH [None]
  - EXTRASYSTOLES [None]
  - FATIGUE [None]
  - FLUSHING [None]
  - GASTROENTERITIS [None]
  - GASTROINTESTINAL INJURY [None]
  - GASTROOESOPHAGEAL REFLUX DISEASE [None]
  - HAEMATURIA [None]
  - HYPERAESTHESIA [None]
  - HYPERHIDROSIS [None]
  - HYPOAESTHESIA [None]
  - HYPOTRICHOSIS [None]
  - INFLAMMATION [None]
  - INFLAMMATORY BOWEL DISEASE [None]
  - INSOMNIA [None]
  - IRRITABLE BOWEL SYNDROME [None]
  - LIP DRY [None]
  - LYMPHADENOPATHY [None]
  - MIGRAINE [None]
  - MYOCARDIAL ISCHAEMIA [None]
  - NASAL CONGESTION [None]
  - NAUSEA [None]
  - NECK PAIN [None]
  - NORMOCHROMIC NORMOCYTIC ANAEMIA [None]
  - PALPITATIONS [None]
  - PARAESTHESIA [None]
  - PELVIC PAIN [None]
  - PHARYNGOLARYNGEAL PAIN [None]
  - RASH MACULO-PAPULAR [None]
  - SCAR [None]
  - SEDATION [None]
  - SINUS BRADYCARDIA [None]
  - SINUS TACHYCARDIA [None]
  - SKIN REACTION [None]
  - SMALL INTESTINE ULCER [None]
  - SMEAR CERVIX ABNORMAL [None]
  - SYNCOPE [None]
  - THERAPEUTIC RESPONSE DECREASED [None]
  - URINARY TRACT INFECTION [None]
  - VENTRICULAR EXTRASYSTOLES [None]
